FAERS Safety Report 24603564 (Version 1)
Quarter: 2024Q4

REPORT INFORMATION
  Report Type: Spontaneous
  Country: ES (occurrence: ES)
  Receive Date: 20241111
  Receipt Date: 20241111
  Transmission Date: 20250114
  Serious: Yes (Hospitalization)
  Sender: FRESENIUS KABI
  Company Number: None

PATIENT
  Age: 60 Year
  Sex: Female

DRUGS (6)
  1. PROPOFOL [Suspect]
     Active Substance: PROPOFOL
     Indication: Sedation
     Route: 042
     Dates: start: 20241008, end: 20241009
  2. AMIODARONE [Suspect]
     Active Substance: AMIODARONE
     Indication: Atrial fibrillation
     Route: 042
     Dates: start: 20241008, end: 20241009
  3. PANTOPRAZOLE SODIUM [Suspect]
     Active Substance: PANTOPRAZOLE SODIUM
     Indication: Gastritis prophylaxis
     Route: 042
     Dates: start: 20241008, end: 20241008
  4. DEXMEDETOMIDINE [Suspect]
     Active Substance: DEXMEDETOMIDINE
     Indication: Sedation
     Route: 042
     Dates: start: 20241008, end: 20241009
  5. FENTANYL [Suspect]
     Active Substance: FENTANYL
     Indication: Sedation
     Route: 042
     Dates: start: 20241008, end: 20241009
  6. CEFUROXIME [Concomitant]
     Active Substance: CEFUROXIME
     Indication: Infection prophylaxis
     Route: 042
     Dates: start: 20241008, end: 20241009

REACTIONS (5)
  - Hallucination [Recovered/Resolved]
  - Agitation [Recovered/Resolved]
  - Echolalia [Recovered/Resolved]
  - Disorientation [Recovered/Resolved]
  - Acute psychosis [Recovered/Resolved]

NARRATIVE: CASE EVENT DATE: 20241009
